FAERS Safety Report 23835783 (Version 1)
Quarter: 2024Q2

REPORT INFORMATION
  Report Type: Report from Study
  Country: GB (occurrence: GB)
  Receive Date: 20240509
  Receipt Date: 20240509
  Transmission Date: 20240715
  Serious: Yes (Hospitalization)
  Sender: FDA-Public Use
  Company Number: GB-TEVA-VS-3193323

PATIENT
  Age: 61 Year
  Sex: Female

DRUGS (1)
  1. AJOVY [Suspect]
     Active Substance: FREMANEZUMAB-VFRM
     Dosage: LAST DOSE ADMINISTERED: 27-APR-2024
     Route: 065

REACTIONS (3)
  - Gastrointestinal disorder [Unknown]
  - Intentional product misuse [Unknown]
  - Illness [Unknown]

NARRATIVE: CASE EVENT DATE: 20240427
